FAERS Safety Report 25981035 (Version 1)
Quarter: 2025Q4

REPORT INFORMATION
  Report Type: Spontaneous
  Country: GB (occurrence: GB)
  Receive Date: 20251030
  Receipt Date: 20251030
  Transmission Date: 20260118
  Serious: Yes (Hospitalization)
  Sender: GALPHARM INTERNATIONAL
  Company Number: GB-ALPEX-PAR-243-2025

PATIENT
  Age: 45 Year
  Sex: Female

DRUGS (3)
  1. ACETAMINOPHEN [Interacting]
     Active Substance: ACETAMINOPHEN
     Indication: Product used for unknown indication
     Dosage: UNK
  2. CANNABIS SATIVA SEED OIL\HERBALS [Suspect]
     Active Substance: CANNABIS SATIVA SEED OIL\HERBALS
     Indication: Product used for unknown indication
     Dosage: UNK
  3. FLUCLOXACILLIN [Interacting]
     Active Substance: FLUCLOXACILLIN
     Indication: Product used for unknown indication
     Dosage: UNK

REACTIONS (1)
  - Adverse drug reaction [Recovered/Resolved]
